FAERS Safety Report 9633190 (Version 2)
Quarter: 2013Q4

REPORT INFORMATION
  Report Type: Spontaneous
  Country: NO (occurrence: NO)
  Receive Date: 20131020
  Receipt Date: 20131204
  Transmission Date: 20140711
  Serious: Yes (Hospitalization, Other)
  Sender: FDA-Public Use
  Company Number: PHHY2013NO117679

PATIENT
  Age: 52 Year
  Sex: Female

DRUGS (2)
  1. EXFORGE HCT [Suspect]
     Indication: HYPERTENSION
     Dosage: 1 DF, DAILY
     Route: 048
     Dates: start: 200909, end: 201310
  2. CIPRALEX [Concomitant]
     Indication: DEPRESSION
     Dosage: 10 MG, DAILY
     Route: 048

REACTIONS (8)
  - Multiple sclerosis [Unknown]
  - Optic neuritis [Unknown]
  - Visual impairment [Unknown]
  - Vision blurred [Recovering/Resolving]
  - Glaucoma [Unknown]
  - Intraocular pressure increased [Unknown]
  - Heart rate irregular [Unknown]
  - Alopecia [Unknown]
